FAERS Safety Report 20584823 (Version 1)
Quarter: 2022Q1

REPORT INFORMATION
  Report Type: Report from Study
  Country: CA (occurrence: CA)
  Receive Date: 20220311
  Receipt Date: 20220311
  Transmission Date: 20220423
  Serious: Yes (Hospitalization, Other)
  Sender: FDA-Public Use
  Company Number: CA-GILEAD-2022-0566698

PATIENT
  Sex: Female
  Weight: 81.8 kg

DRUGS (21)
  1. SACITUZUMAB GOVITECAN [Suspect]
     Active Substance: SACITUZUMAB GOVITECAN
     Indication: Triple negative breast cancer
     Dosage: 577 MG
     Route: 042
     Dates: start: 20211209
  2. SACITUZUMAB GOVITECAN [Suspect]
     Active Substance: SACITUZUMAB GOVITECAN
     Dosage: 577 MG
     Route: 042
     Dates: start: 20211216
  3. SACITUZUMAB GOVITECAN [Suspect]
     Active Substance: SACITUZUMAB GOVITECAN
     Dosage: 577 MG, C2D8
     Route: 042
     Dates: start: 20220127, end: 20220127
  4. SACITUZUMAB GOVITECAN [Suspect]
     Active Substance: SACITUZUMAB GOVITECAN
     Dosage: 577 MG, C3D1
     Route: 042
     Dates: start: 20220217, end: 20220217
  5. ACETAMINOPHEN [Concomitant]
     Active Substance: ACETAMINOPHEN
     Dosage: 650 MG PO
  6. ACETAMINOPHEN [Concomitant]
     Active Substance: ACETAMINOPHEN
     Dosage: 650MG PO (PRE- MEDICATION PRIOR TO TRODELVY)
  7. ACETAMINOPHEN [Concomitant]
     Active Substance: ACETAMINOPHEN
     Dosage: 650 MG PO (PRE-MEDICATION PRIOR TO TRODELVY)
  8. ACETAMINOPHEN [Concomitant]
     Active Substance: ACETAMINOPHEN
     Dosage: 650 MG PO (PRE-MEDICATION PRIOR TO TRODELVY)
  9. ACETAMINOPHEN [Concomitant]
     Active Substance: ACETAMINOPHEN
     Dosage: 650 MG PO (PRE-MEDICATION PRIOR TO TRODELVY)
  10. ACETAMINOPHEN [Concomitant]
     Active Substance: ACETAMINOPHEN
     Dosage: 650 MG PO (PRE-MEDICATION PRIOR TO TRODELVY)
  11. FAMOTIDINE [Concomitant]
     Active Substance: FAMOTIDINE
     Dosage: 20 MG PO
  12. FAMOTIDINE [Concomitant]
     Active Substance: FAMOTIDINE
     Dosage: 20 MG PO (PRE- MEDICATION PRIOR TO TRODELVY)
  13. FAMOTIDINE [Concomitant]
     Active Substance: FAMOTIDINE
     Dosage: 20 MG PO (PRE-MEDICATION PRIOR TO TRODELVY)
  14. FAMOTIDINE [Concomitant]
     Active Substance: FAMOTIDINE
     Dosage: 20 MG PO (PRE-MEDICATION PRIOR TO TRODELVY)
  15. FAMOTIDINE [Concomitant]
     Active Substance: FAMOTIDINE
     Dosage: 20 MG PO (PRE-MEDICATION PRIOR TO TRODELVY)
  16. DECADRON [Concomitant]
     Active Substance: DEXAMETHASONE
     Dosage: 12 MG PO
  17. DECADRON [Concomitant]
     Active Substance: DEXAMETHASONE
     Dosage: 8 MG PO (PRE-MEDICATION PRIOR TO TRODELVY)
     Route: 048
  18. ZOFRAN [Concomitant]
     Active Substance: ONDANSETRON HYDROCHLORIDE
     Dosage: 8 MG PO
  19. BENADRYL [Concomitant]
     Active Substance: DIPHENHYDRAMINE HYDROCHLORIDE
     Dosage: 25 MG PO (PRE-MEDICATION PRIOR TO TRODELVY)
     Route: 048
  20. AKYNZEO [Concomitant]
     Active Substance: NETUPITANT\PALONOSETRON HYDROCHLORIDE
     Dosage: 30 MG PO (PRE- MEDICATION PRIOR TO TRODELVY)
  21. AKYNZEO [Concomitant]
     Active Substance: NETUPITANT\PALONOSETRON HYDROCHLORIDE
     Dosage: 300 MG (PRE-MEDICATION PRIOR TO TRODELVY)

REACTIONS (11)
  - Fatigue [Not Recovered/Not Resolved]
  - Hypertension [Unknown]
  - White blood cell count decreased [Not Recovered/Not Resolved]
  - Weight decreased [Not Recovered/Not Resolved]
  - Dyspepsia [Recovered/Resolved]
  - Vomiting [Recovered/Resolved]
  - Weight increased [Unknown]
  - Dizziness [Unknown]
  - Syncope [Unknown]
  - Malaise [Unknown]
  - Disease progression [Unknown]
